FAERS Safety Report 4828320-7 (Version None)
Quarter: 2005Q4

REPORT INFORMATION
  Report Type: 
  Country: None (occurrence: None)
  Receive Date: 20051115
  Receipt Date: 20051104
  Transmission Date: 20060501
  Serious: Yes (Hospitalization)
  Sender: FDA-Public Use
  Company Number: GB-SANOFI-SYNTHELABO-A01200507574

PATIENT
  Age: 72 Year
  Sex: Male
  Weight: 99 kg

DRUGS (5)
  1. CLOPIDOGREL BISULFATE [Suspect]
     Indication: BLOOD VISCOSITY INCREASED
     Route: 048
     Dates: start: 20000201, end: 20050801
  2. WARFARIN [Concomitant]
     Indication: BLOOD VISCOSITY INCREASED
     Dosage: UNK
     Route: 065
  3. PERINDOPRIL [Concomitant]
     Indication: HYPERTENSION
     Route: 065
     Dates: start: 20050801
  4. ATORVASTATIN CALCIUM [Concomitant]
     Indication: BLOOD CHOLESTEROL INCREASED
     Route: 065
     Dates: start: 20040101
  5. BISOPROLOL [Concomitant]
     Indication: HYPERTENSION
     Route: 065

REACTIONS (1)
  - OESOPHAGEAL ULCER [None]
